FAERS Safety Report 4272569-1 (Version None)
Quarter: 2004Q1

REPORT INFORMATION
  Report Type: 
  Country: None (occurrence: None)
  Receive Date: 20040114
  Receipt Date: 20040114
  Transmission Date: 20041129
  Serious: Yes (Other)
  Sender: FDA-Public Use
  Company Number: None

PATIENT
  Age: 78 Year
  Sex: Male

DRUGS (13)
  1. PROVIGIL [Suspect]
     Indication: FATIGUE
     Dosage: 200 MG PO QD
     Route: 048
     Dates: start: 20031213, end: 20031215
  2. PROVIGIL [Suspect]
     Indication: MULTIPLE SCLEROSIS
     Dosage: 200 MG PO QD
     Route: 048
     Dates: start: 20031213, end: 20031215
  3. ACETAMINOPHEN [Concomitant]
  4. AMANTADINE HCL [Concomitant]
  5. ATENOLOL [Concomitant]
  6. BACLOFEN [Concomitant]
  7. DSS [Concomitant]
  8. LANSOPRAZOLE [Concomitant]
  9. OXYBUTYNIN [Concomitant]
  10. PREDNISONE [Concomitant]
  11. SENNOSIDES [Concomitant]
  12. TERBINAFINE HCL [Concomitant]
  13. SORBITOL [Concomitant]

REACTIONS (5)
  - INSOMNIA [None]
  - OEDEMA PERIPHERAL [None]
  - PARAESTHESIA [None]
  - PRURITUS [None]
  - RASH ERYTHEMATOUS [None]
